FAERS Safety Report 10111713 (Version 1)
Quarter: 2014Q2

REPORT INFORMATION
  Report Type: Spontaneous
  Country: JP (occurrence: JP)
  Receive Date: 20140425
  Receipt Date: 20140425
  Transmission Date: 20141212
  Serious: Yes (Other)
  Sender: FDA-Public Use
  Company Number: JP-ASTRAZENECA-2014SE28165

PATIENT
  Age: 83 Year
  Sex: Female

DRUGS (2)
  1. OMEPRAZON [Suspect]
     Route: 048
  2. URSO [Suspect]
     Route: 048

REACTIONS (3)
  - Red blood cell count decreased [Not Recovered/Not Resolved]
  - Platelet count decreased [Not Recovered/Not Resolved]
  - White blood cell count decreased [Not Recovered/Not Resolved]
